FAERS Safety Report 24293843 (Version 1)
Quarter: 2024Q3

REPORT INFORMATION
  Report Type: Spontaneous
  Country: US (occurrence: None)
  Receive Date: 20240906
  Receipt Date: 20240906
  Transmission Date: 20241017
  Serious: No
  Sender: DOMPE FARMACEUTICI
  Company Number: US-FARMAPROD-202403-0772

PATIENT
  Age: 83 Year
  Sex: Female

DRUGS (7)
  1. OXERVATE [Suspect]
     Active Substance: CENEGERMIN-BKBJ
     Indication: Neurotrophic keratopathy
     Route: 047
  2. OXERVATE [Suspect]
     Active Substance: CENEGERMIN-BKBJ
  3. PREDNISOLONE [Concomitant]
     Active Substance: PREDNISOLONE
  4. CARBOXYMETHYLCELLULOSE SODIUM [Concomitant]
     Active Substance: CARBOXYMETHYLCELLULOSE SODIUM
  5. LATANOPROST [Concomitant]
     Active Substance: LATANOPROST
  6. LEVOBUNOLOL HYDROCHLORIDE [Concomitant]
     Active Substance: LEVOBUNOLOL HYDROCHLORIDE
  7. ACYCLOVIR [Concomitant]
     Active Substance: ACYCLOVIR

REACTIONS (3)
  - Wrong technique in product usage process [Recovered/Resolved]
  - Product administration error [Unknown]
  - Eye irritation [Unknown]

NARRATIVE: CASE EVENT DATE: 20240201
